FAERS Safety Report 17315866 (Version 1)
Quarter: 2020Q1

REPORT INFORMATION
  Report Type: Spontaneous
  Country: BE (occurrence: BE)
  Receive Date: 20200124
  Receipt Date: 20200124
  Transmission Date: 20200409
  Serious: Yes (Hospitalization, Other)
  Sender: FDA-Public Use
  Company Number: BE-MYLANLABS-2020M1006938

PATIENT

DRUGS (2)
  1. IRBESARTAN. [Suspect]
     Active Substance: IRBESARTAN
     Indication: HYPERTENSION
     Dosage: 75 MG, QD
     Route: 048
     Dates: start: 20190515, end: 20190621
  2. RELVAR ELLIPTA                     /08236201/ [Suspect]
     Active Substance: FLUTICASONE FUROATE\VILANTEROL TRIFENATATE
     Indication: ASTHMA
     Dosage: 92 UG, QD
     Route: 055
     Dates: start: 20190514, end: 20190618

REACTIONS (5)
  - Angioedema [Recovered/Resolved]
  - Laryngeal oedema [Unknown]
  - Eyelid oedema [Recovered/Resolved]
  - Blood immunoglobulin E increased [Unknown]
  - Oral allergy syndrome [Unknown]

NARRATIVE: CASE EVENT DATE: 20190515
